FAERS Safety Report 13744756 (Version 3)
Quarter: 2017Q3

REPORT INFORMATION
  Report Type: Report from Study
  Country: US (occurrence: US)
  Receive Date: 20170712
  Receipt Date: 20170829
  Transmission Date: 20171127
  Serious: Yes (Other)
  Sender: FDA-Public Use
  Company Number: US-AMGEN-USASL2017103100

PATIENT
  Age: 46 Year
  Sex: Female

DRUGS (2)
  1. ENBREL [Suspect]
     Active Substance: ETANERCEPT
     Indication: PSORIATIC ARTHROPATHY
     Dosage: 50 MG, 2 TIMES/WK
     Route: 065
  2. ENBREL [Suspect]
     Active Substance: ETANERCEPT
     Dosage: 50 MG, 2 TIMES/WK
     Route: 065

REACTIONS (8)
  - Ill-defined disorder [Unknown]
  - Headache [Unknown]
  - Mobility decreased [Unknown]
  - Psoriatic arthropathy [Recovering/Resolving]
  - Limb injury [Unknown]
  - Fall [Unknown]
  - Off label use [Unknown]
  - Tendonitis [Unknown]

NARRATIVE: CASE EVENT DATE: 2017
